FAERS Safety Report 8245660-2 (Version None)
Quarter: 2012Q1

REPORT INFORMATION
  Report Type: 
  Country: None (occurrence: None)
  Receive Date: 20120330
  Receipt Date: 20120326
  Transmission Date: 20120608
  Serious: No
  Sender: FDA-Public Use
  Company Number: US-BIOGENIDEC-2011BI037829

PATIENT
  Sex: Male

DRUGS (1)
  1. TYSABRI [Suspect]
     Indication: MULTIPLE SCLEROSIS
     Route: 042
     Dates: start: 20110203

REACTIONS (5)
  - TEMPERATURE INTOLERANCE [None]
  - DIZZINESS [None]
  - FEELING HOT [None]
  - PNEUMONIA [None]
  - AGITATION [None]
